FAERS Safety Report 14938058 (Version 2)
Quarter: 2018Q2

REPORT INFORMATION
  Report Type: Spontaneous
  Country: AU (occurrence: AU)
  Receive Date: 20180525
  Receipt Date: 20180604
  Transmission Date: 20180711
  Serious: Yes (Other)
  Sender: FDA-Public Use
  Company Number: AU-CONCORDIA PHARMACEUTICALS INC.-GSH201805-001751

PATIENT
  Age: 69 Year
  Sex: Female

DRUGS (2)
  1. HYDROXYCHLOROQUINE [Suspect]
     Active Substance: HYDROXYCHLOROQUINE
     Dosage: 11.4 MG/KG ACTUAL BODY WEIGHT, CUMULATIVE DOSE MORE THAN 440 G
     Route: 065
  2. HYDROXYCHLOROQUINE [Suspect]
     Active Substance: HYDROXYCHLOROQUINE
     Indication: LICHEN PLANUS
     Route: 065

REACTIONS (7)
  - Macular degeneration [Unknown]
  - Vision blurred [Unknown]
  - Visual field defect [Unknown]
  - Optical coherence tomography abnormal [Unknown]
  - Retinal toxicity [Unknown]
  - Off label use [Unknown]
  - Overdose [Unknown]
